FAERS Safety Report 9607775 (Version 1)
Quarter: 2013Q4

REPORT INFORMATION
  Report Type: Spontaneous
  Country: US (occurrence: None)
  Receive Date: 20131008
  Receipt Date: 20131008
  Transmission Date: 20140711
  Serious: Yes (Life-Threatening, Hospitalization, Disabling)
  Sender: FDA-Public Use
  Company Number: None

PATIENT
  Age: 42 Year
  Sex: Female
  Weight: 88 kg

DRUGS (5)
  1. SUMATRIPTAN [Suspect]
     Dosage: TAKE 1 TABLET AT FIRST SIGN OF HEADACHE MAY REPEAT IN 2 HOURS,  NO MORE THAN 2 TABLETS IN 24 HOURS
     Route: 048
     Dates: start: 20130914, end: 20130915
  2. ZYRTEC [Concomitant]
  3. SUMATRIPTAN [Concomitant]
  4. IBUPROFEN [Concomitant]
  5. CARDIZEM [Concomitant]

REACTIONS (2)
  - Acute myocardial infarction [None]
  - Arteriospasm coronary [None]
